FAERS Safety Report 18334708 (Version 1)
Quarter: 2020Q4

REPORT INFORMATION
  Report Type: Spontaneous
  Country: US (occurrence: US)
  Receive Date: 20201001
  Receipt Date: 20201001
  Transmission Date: 20210113
  Serious: No
  Sender: FDA-Public Use
  Company Number: US-PFIZER INC-2020376057

PATIENT
  Sex: Female

DRUGS (3)
  1. SINOPRIL [LISINOPRIL] [Suspect]
     Active Substance: LISINOPRIL
     Dosage: UNK
  2. PROCARDIA [Suspect]
     Active Substance: NIFEDIPINE
     Dosage: UNK
  3. IODINE. [Suspect]
     Active Substance: IODINE
     Dosage: UNK

REACTIONS (1)
  - Drug hypersensitivity [Unknown]
